FAERS Safety Report 24458406 (Version 2)
Quarter: 2024Q4

REPORT INFORMATION
  Report Type: Spontaneous
  Country: DE (occurrence: DE)
  Receive Date: 20241018
  Receipt Date: 20241209
  Transmission Date: 20250115
  Serious: Yes (Death, Other)
  Sender: CELLTRION
  Company Number: DE-ROCHE-3543127

PATIENT

DRUGS (4)
  1. BEVACIZUMAB [Suspect]
     Active Substance: BEVACIZUMAB
     Indication: Neoplasm malignant
     Dosage: 350 MG EVERY 2 WEEKS (MOST RECENT DOSE ON 01/FEB/2023)
     Route: 042
     Dates: start: 20221102, end: 20230201
  2. LEUCOVORIN CALCIUM [Suspect]
     Active Substance: LEUCOVORIN CALCIUM
     Indication: Neoplasm malignant
     Dosage: 692 MG EVERY 2 WEEKS (MOST RECENT DOSE ON 01/FEB/2023)
     Route: 042
     Dates: start: 20221102, end: 20230201
  3. FLUOROURACIL [Suspect]
     Active Substance: FLUOROURACIL
     Indication: Neoplasm malignant
     Dosage: 2076 MG EVERY 2 WEEKS (MOST RECENT DOSE ON 01/FEB/2023)
     Route: 042
     Dates: start: 20221102, end: 20230201
  4. IRINOTECAN HYDROCHLORIDE [Suspect]
     Active Substance: IRINOTECAN HYDROCHLORIDE
     Indication: Neoplasm malignant
     Dosage: 186.84 MG EVERY 2 WEEKS (MOST RECENT DOSE ON 01/FEB/2023)
     Route: 042
     Dates: start: 20221102, end: 20230201

REACTIONS (2)
  - Neoplasm malignant [Fatal]
  - Neutropenia [Not Recovered/Not Resolved]

NARRATIVE: CASE EVENT DATE: 20230210
